FAERS Safety Report 4791209-6 (Version None)
Quarter: 2005Q4

REPORT INFORMATION
  Report Type: 
  Country: None (occurrence: None)
  Receive Date: 20051007
  Receipt Date: 20050927
  Transmission Date: 20060501
  Serious: Yes (Hospitalization)
  Sender: FDA-Public Use
  Company Number: FR-BRISTOL-MYERS SQUIBB COMPANY-13125760

PATIENT
  Age: 78 Year
  Sex: Female

DRUGS (3)
  1. APROVEL FILM-COATED TABS 75 MG [Suspect]
     Indication: HYPERTENSION
     Route: 048
     Dates: start: 20030630, end: 20050809
  2. TEMESTA [Concomitant]
  3. ZOLOFT [Suspect]
     Indication: DEPRESSION
     Dates: start: 20050725, end: 20050809

REACTIONS (2)
  - HYPONATRAEMIA [None]
  - INAPPROPRIATE ANTIDIURETIC HORMONE SECRETION [None]
